FAERS Safety Report 23515996 (Version 1)
Quarter: 2024Q1

REPORT INFORMATION
  Report Type: Spontaneous
  Country: CA (occurrence: CA)
  Receive Date: 20240213
  Receipt Date: 20240213
  Transmission Date: 20240410
  Serious: Yes (Other)
  Sender: FDA-Public Use
  Company Number: CA-JNJFOC-20240210339

PATIENT
  Age: 71 Year
  Sex: Male

DRUGS (1)
  1. ERLEADA [Suspect]
     Active Substance: APALUTAMIDE
     Indication: Prostate cancer
     Dosage: TAKES 4 TABLETS PER DAY IN THE AFTERNOON
     Route: 048

REACTIONS (4)
  - Erectile dysfunction [Unknown]
  - Syncope [Unknown]
  - Dizziness [Unknown]
  - Off label use [Unknown]
